FAERS Safety Report 23959810 (Version 9)
Quarter: 2024Q4

REPORT INFORMATION
  Report Type: Spontaneous
  Country: US (occurrence: US)
  Receive Date: 20240611
  Receipt Date: 20241231
  Transmission Date: 20250115
  Serious: Yes (Hospitalization)
  Sender: NOVARTIS
  Company Number: US-002147023-NVSC2024US121776

PATIENT
  Sex: Female

DRUGS (2)
  1. COSENTYX [Suspect]
     Active Substance: SECUKINUMAB
     Indication: Hidradenitis
     Dosage: UNK
     Route: 065
  2. METFORMIN [Concomitant]
     Active Substance: METFORMIN HYDROCHLORIDE
     Indication: Product used for unknown indication
     Dosage: UNK (FOR 20 YEARS)
     Route: 065

REACTIONS (13)
  - Haematochezia [Unknown]
  - Mucous stools [Unknown]
  - Inflammation [Unknown]
  - Colitis [Unknown]
  - Pain [Unknown]
  - Fatigue [Unknown]
  - Pollakiuria [Unknown]
  - Gastrointestinal motility disorder [Unknown]
  - Illness [Unknown]
  - Hidradenitis [Unknown]
  - Diarrhoea [Recovered/Resolved]
  - Gastrointestinal infection [Unknown]
  - Drug ineffective [Unknown]
